FAERS Safety Report 4434679-5 (Version None)
Quarter: 2004Q3

REPORT INFORMATION
  Report Type: 
  Country: None (occurrence: None)
  Receive Date: 20040826
  Receipt Date: 20040820
  Transmission Date: 20050211
  Serious: Yes (Other)
  Sender: FDA-Public Use
  Company Number: 002486

PATIENT
  Age: 54 Year
  Sex: Female

DRUGS (4)
  1. MEDROXYPROGESTERONE ACETATE [Suspect]
     Dates: start: 19950302, end: 19960415
  2. PREMARIN [Suspect]
     Dates: start: 19950302, end: 19960415
  3. PROVERA [Suspect]
     Dates: start: 19950302, end: 19960415
  4. MEDROXYPROGESTERONE ACETATE [Suspect]
     Dates: start: 19960415, end: 19981022

REACTIONS (1)
  - BREAST CANCER [None]
